FAERS Safety Report 7906557-8 (Version None)
Quarter: 2011Q4

REPORT INFORMATION
  Report Type: 
  Country: None (occurrence: None)
  Receive Date: 20111110
  Receipt Date: 20110511
  Transmission Date: 20120403
  Serious: No
  Sender: FDA-Public Use
  Company Number: US-MUTUAL PHARMACEUTICAL COMPANY, INC.-PNTM20110002

PATIENT
  Sex: Female
  Weight: 96.248 kg

DRUGS (2)
  1. PHENTERMINE [Suspect]
     Indication: WEIGHT DECREASED
     Route: 048
     Dates: start: 20080101
  2. CALCIUM [Concomitant]
     Indication: VITAMIN SUPPLEMENTATION
     Route: 048

REACTIONS (4)
  - CHEST DISCOMFORT [None]
  - DYSPNOEA [None]
  - PHARYNGEAL OEDEMA [None]
  - HEADACHE [None]
